FAERS Safety Report 4844029-8 (Version None)
Quarter: 2005Q4

REPORT INFORMATION
  Report Type: 
  Country: None (occurrence: None)
  Receive Date: 20051202
  Receipt Date: 20051123
  Transmission Date: 20060501
  Serious: Yes (Hospitalization)
  Sender: FDA-Public Use
  Company Number: DE-MERCK-0511DEU00157

PATIENT
  Sex: Female

DRUGS (7)
  1. VIOXX [Suspect]
     Route: 048
     Dates: start: 20040308, end: 20040312
  2. LITHIUM CARBONATE [Suspect]
     Route: 048
     Dates: start: 20040308, end: 20040311
  3. LITHIUM CARBONATE [Suspect]
     Route: 048
     Dates: start: 20040311, end: 20040311
  4. LITHIUM CARBONATE [Suspect]
     Route: 048
     Dates: start: 20040313, end: 20040322
  5. LITHIUM CARBONATE [Suspect]
     Route: 048
     Dates: start: 20040323
  6. CLOZAPINE [Concomitant]
     Route: 048
     Dates: start: 20040304, end: 20040323
  7. HALOPERIDOL [Concomitant]
     Route: 048
     Dates: start: 20040202, end: 20040323

REACTIONS (1)
  - DRUG INTERACTION [None]
